FAERS Safety Report 8472826-9 (Version None)
Quarter: 2012Q2

REPORT INFORMATION
  Report Type: 
  Country: None (occurrence: None)
  Receive Date: 20120627
  Receipt Date: 20120625
  Transmission Date: 20120825
  Serious: No
  Sender: FDA-Public Use
  Company Number: US-PFIZER INC-2012127257

PATIENT
  Sex: Male
  Weight: 102 kg

DRUGS (5)
  1. LIPITOR [Suspect]
     Indication: BLOOD CHOLESTEROL INCREASED
     Dosage: 50 MG, 2X/DAY
     Dates: start: 20120201, end: 20120501
  2. LISINOPRIL [Concomitant]
     Indication: CARDIAC DISORDER
     Dosage: 40 MG, DAILY
  3. ASPIRIN [Concomitant]
     Indication: CARDIAC DISORDER
     Dosage: 325 MG, 2X/DAY
  4. METOPROLOL [Concomitant]
     Indication: CARDIAC DISORDER
     Dosage: 50 MG, 2X/DAY
  5. RANEXA [Suspect]
     Indication: CARDIAC DISORDER
     Dosage: 500 MG, 2X/DAY
     Dates: start: 20120201

REACTIONS (3)
  - SLEEP DISORDER [None]
  - SLUGGISHNESS [None]
  - BLOOD CHOLESTEROL INCREASED [None]
